FAERS Safety Report 5702067-7 (Version None)
Quarter: 2008Q2

REPORT INFORMATION
  Report Type: 
  Country: None (occurrence: None)
  Receive Date: 20080411
  Receipt Date: 20070716
  Transmission Date: 20081010
  Serious: No
  Sender: FDA-Public Use
  Company Number: US-ABBOTT-07P-163-0374694-00

PATIENT
  Sex: Male
  Weight: 70.37 kg

DRUGS (5)
  1. DEPAKOTE [Suspect]
     Indication: CONVULSION
     Route: 048
     Dates: start: 20020101
  2. CARBAMAZEPINE [Suspect]
     Indication: DRUG USE FOR UNKNOWN INDICATION
  3. PRIMIDONE [Concomitant]
     Indication: CONVULSION
     Route: 048
     Dates: start: 19670101
  4. PRIMIDONE [Concomitant]
     Indication: MIGRAINE
  5. CARBAMAZEPINE [Concomitant]

REACTIONS (1)
  - DIARRHOEA [None]
